FAERS Safety Report 10073411 (Version 3)
Quarter: 2014Q2

REPORT INFORMATION
  Report Type: Report from Study
  Country: AU (occurrence: AU)
  Receive Date: 20140411
  Receipt Date: 20140613
  Transmission Date: 20141212
  Serious: Yes (Hospitalization, Other)
  Sender: FDA-Public Use
  Company Number: AU-BRISTOL-MYERS SQUIBB COMPANY-20603635

PATIENT
  Age: 29 Year
  Sex: Female

DRUGS (10)
  1. ORENCIA [Suspect]
     Indication: RHEUMATOID ARTHRITIS
     Route: 042
     Dates: start: 20110209
  2. VITAMIN D [Concomitant]
     Dosage: CITRICAL VITAMIN D
  3. DILANTIN [Concomitant]
  4. ENDONE [Concomitant]
  5. MAXALT [Concomitant]
  6. MOBIC [Concomitant]
  7. NEXIUM [Concomitant]
  8. PANADEINE FORTE [Concomitant]
  9. PLAQUENIL [Concomitant]
  10. CLONAZEPAM [Concomitant]

REACTIONS (6)
  - Epilepsy [Recovered/Resolved with Sequelae]
  - Kidney infection [Unknown]
  - Rotator cuff syndrome [Unknown]
  - Vomiting [Recovered/Resolved]
  - Lower respiratory tract infection [Unknown]
  - Malaise [Unknown]
